FAERS Safety Report 9458614 (Version 1)
Quarter: 2013Q3

REPORT INFORMATION
  Report Type: Spontaneous
  Country: US (occurrence: US)
  Receive Date: 20130814
  Receipt Date: 20130814
  Transmission Date: 20140515
  Serious: Yes (Hospitalization)
  Sender: FDA-Public Use
  Company Number: PHEH2013US014146

PATIENT
  Sex: Female

DRUGS (3)
  1. GILENYA [Suspect]
     Indication: MULTIPLE SCLEROSIS
     Dosage: 0.5 MG, QD
     Route: 048
     Dates: start: 201205
  2. GILENYA [Suspect]
     Dosage: 0.5 MG, QD
     Route: 048
  3. AMPYRA [Suspect]

REACTIONS (3)
  - Full blood count decreased [Recovered/Resolved]
  - Urinary tract infection [Recovering/Resolving]
  - Liver function test abnormal [Recovered/Resolved]
